FAERS Safety Report 25656539 (Version 1)
Quarter: 2025Q3

REPORT INFORMATION
  Report Type: Spontaneous
  Country: IN (occurrence: None)
  Receive Date: 20250807
  Receipt Date: 20250807
  Transmission Date: 20251020
  Serious: Yes (Other)
  Sender: Harrow Health
  Company Number: EUOW2025LIT0001

PATIENT
  Age: 69 Year
  Sex: Male

DRUGS (6)
  1. NATACYN [Suspect]
     Active Substance: NATAMYCIN
     Indication: Keratitis fungal
     Route: 047
     Dates: start: 2025
  2. Oral ketoconazole [Concomitant]
  3. Topical cycloplegics [Concomitant]
  4. Oral analgesics [Concomitant]
  5. Topical voriconazole [Concomitant]
  6. Intravitreal amphotericin B [Concomitant]

REACTIONS (3)
  - Condition aggravated [Not Recovered/Not Resolved]
  - Corneal perforation [Not Recovered/Not Resolved]
  - Drug ineffective [Unknown]
